FAERS Safety Report 11646121 (Version 1)
Quarter: 2015Q4

REPORT INFORMATION
  Report Type: Spontaneous
  Country: US (occurrence: US)
  Receive Date: 20151020
  Receipt Date: 20151020
  Transmission Date: 20160304
  Serious: No
  Sender: FDA-Public Use
  Company Number: US-ROCHE-ITM201505IM015329

PATIENT
  Sex: Female
  Weight: 60.84 kg

DRUGS (1)
  1. ESBRIET [Suspect]
     Active Substance: PIRFENIDONE
     Indication: IDIOPATHIC PULMONARY FIBROSIS
     Dosage: STRENGTH: 267MG, 3 CAPSULES THREE TIMES A DAY
     Route: 048
     Dates: start: 20141222

REACTIONS (4)
  - Bronchitis [Recovering/Resolving]
  - Blister [Unknown]
  - Rash erythematous [Unknown]
  - Rash pruritic [Unknown]
